FAERS Safety Report 6124227-6 (Version None)
Quarter: 2009Q1

REPORT INFORMATION
  Report Type: 
  Country: None (occurrence: None)
  Receive Date: 20090319
  Receipt Date: 20090309
  Transmission Date: 20090719
  Serious: Yes (Hospitalization)
  Sender: FDA-Public Use
  Company Number: KP-WATSON-2009-01596

PATIENT
  Age: 65 Year
  Sex: Female

DRUGS (1)
  1. DEFEROXAMINE MESYLATE (WATSON LABORATORIES) [Suspect]
     Indication: IRON OVERLOAD
     Dosage: UNK
     Route: 042
     Dates: start: 20080101

REACTIONS (1)
  - BACTERIAL SEPSIS [None]
